FAERS Safety Report 19969924 (Version 1)
Quarter: 2021Q4

REPORT INFORMATION
  Report Type: Spontaneous
  Country: US (occurrence: US)
  Receive Date: 20211019
  Receipt Date: 20211019
  Transmission Date: 20220303
  Serious: No
  Sender: FDA-Public Use
  Company Number: 2021A760115

PATIENT
  Sex: Female

DRUGS (1)
  1. SYMBICORT [Suspect]
     Active Substance: BUDESONIDE\FORMOTEROL FUMARATE DIHYDRATE
     Dosage: 160/4.5 MCG 120 INHALATIONS, PATIENT STATED SHE TAKES IT AS NEEDED
     Route: 055

REACTIONS (5)
  - Cataract [Unknown]
  - Intentional device misuse [Unknown]
  - Intentional product misuse [Unknown]
  - Device malfunction [Unknown]
  - Inability to afford medication [Unknown]
